FAERS Safety Report 23757514 (Version 1)
Quarter: 2024Q2

REPORT INFORMATION
  Report Type: Spontaneous
  Country: US (occurrence: US)
  Receive Date: 20240418
  Receipt Date: 20240418
  Transmission Date: 20240715
  Serious: No
  Sender: FDA-Public Use
  Company Number: US-TARO PHARMACEUTICALS USA INC.-2023TAR00455

PATIENT

DRUGS (1)
  1. CICLOPIROX [Suspect]
     Active Substance: CICLOPIROX\TOCOPHEROL
     Indication: Seborrhoeic dermatitis
     Dosage: UNK, 1/WEEK, IF I COULD I WOULD USE IT EVERY WEEK, BUT I TRY HARD NOT TO BECAUSE OF THIS REACTION, H
     Route: 061

REACTIONS (2)
  - Reaction to excipient [Not Recovered/Not Resolved]
  - Alopecia [Not Recovered/Not Resolved]
